FAERS Safety Report 19974052 (Version 1)
Quarter: 2021Q4

REPORT INFORMATION
  Report Type: Spontaneous
  Country: US (occurrence: US)
  Receive Date: 20211020
  Receipt Date: 20211020
  Transmission Date: 20220303
  Serious: Yes (Hospitalization)
  Sender: FDA-Public Use
  Company Number: None

PATIENT
  Sex: Female

DRUGS (1)
  1. HUMIRA [Suspect]
     Active Substance: ADALIMUMAB
     Indication: Colitis
     Dosage: ?          OTHER FREQUENCY:EVERY 14 DAYS;
     Route: 058
     Dates: start: 20210928

REACTIONS (4)
  - Diarrhoea [None]
  - Abdominal pain [None]
  - Weight abnormal [None]
  - Condition aggravated [None]

NARRATIVE: CASE EVENT DATE: 20210930
